FAERS Safety Report 23065764 (Version 4)
Quarter: 2024Q3

REPORT INFORMATION
  Report Type: Spontaneous
  Country: HR (occurrence: HR)
  Receive Date: 20231014
  Receipt Date: 20240904
  Transmission Date: 20241017
  Serious: Yes (Other)
  Sender: AUROBINDO
  Company Number: HR-BAXTER-2023BAX032289

PATIENT
  Age: 63 Year
  Sex: Male

DRUGS (35)
  1. MELPHALAN [Suspect]
     Active Substance: MELPHALAN
     Indication: Light chain disease
     Dosage: UNK (3 TIMES, AS A PART OF KD+MP REGIMEN (FROM APR-2023 TO JUN-2023))
     Route: 065
     Dates: start: 202304, end: 202306
  2. MELPHALAN [Suspect]
     Active Substance: MELPHALAN
     Indication: Plasma cell myeloma
  3. CARFILZOMIB [Suspect]
     Active Substance: CARFILZOMIB
     Indication: Plasma cell myeloma
     Dosage: UNK, 1 TIME AS A PART OF KD+PACE REGIMEN (START DATE: MAR-2023)
     Route: 065
     Dates: start: 202303
  4. CARFILZOMIB [Suspect]
     Active Substance: CARFILZOMIB
     Indication: Light chain disease
     Dosage: UNK, 3 TIMES, AS A PART OF KD+MP REGIMEN (FROM APR-2023 TO JUN-2023)
     Route: 065
     Dates: start: 202304, end: 202306
  5. CARFILZOMIB [Suspect]
     Active Substance: CARFILZOMIB
     Dosage: 1X KD
     Route: 065
     Dates: start: 202303, end: 202303
  6. CISPLATIN [Suspect]
     Active Substance: CISPLATIN
     Indication: Plasma cell myeloma
     Dosage: UNK, 1 TIME AS A PART OF KD+PACE REGIMEN (START DATE: MAR-2023)
     Route: 065
     Dates: start: 202303, end: 202303
  7. CISPLATIN [Suspect]
     Active Substance: CISPLATIN
     Indication: Light chain disease
  8. CYCLOPHOSPHAMIDE [Suspect]
     Active Substance: CYCLOPHOSPHAMIDE
     Indication: Light chain disease
     Dosage: UNK (5 TIMES AS A PART OF VCD REGIMEN (FROM MAR-2022 TO MAY-2022))
     Route: 065
     Dates: start: 202203, end: 202205
  9. CYCLOPHOSPHAMIDE [Suspect]
     Active Substance: CYCLOPHOSPHAMIDE
     Indication: Plasma cell myeloma
     Dosage: UNK ( 1 TIME AS A PART OF KD+PACE REGIMEN (START DATE: MAR-2023))
     Route: 065
     Dates: start: 202303
  10. DARATUMUMAB [Suspect]
     Active Substance: DARATUMUMAB
     Indication: Plasma cell myeloma
     Dosage: UNK 5X DRD
     Route: 065
     Dates: start: 202208, end: 202302
  11. DARATUMUMAB [Suspect]
     Active Substance: DARATUMUMAB
     Indication: Light chain disease
  12. DARZALEX [Suspect]
     Active Substance: DARATUMUMAB
     Indication: Plasma cell myeloma
     Dosage: UNK, 5 TIMES AS A PART OF DRD REGIMEN (FROM AUG-2022 TO FEB-2023)
     Route: 065
     Dates: start: 202208, end: 202302
  13. DARZALEX [Suspect]
     Active Substance: DARATUMUMAB
     Indication: Light chain disease
  14. DEXAMETHASONE [Suspect]
     Active Substance: DEXAMETHASONE
     Indication: Light chain disease
     Dosage: UNK, 1 TIME AS A PART OF KD+PACE REGIMEN (START DATE: MAR-2023)
     Route: 065
  15. DEXAMETHASONE [Suspect]
     Active Substance: DEXAMETHASONE
     Indication: Plasma cell myeloma
     Dosage: UNK, ( 5 TIMES AS A PART OF VCD REGIMEN (FROM MAR-2022 TO MAY-2022))
     Route: 065
     Dates: start: 202203, end: 202205
  16. DEXAMETHASONE [Suspect]
     Active Substance: DEXAMETHASONE
     Dosage: UNK ( 3 TIMES, AS A PART OF KD+MP REGIMEN (FROM APR-2023 TO JUN-2023))
     Route: 065
     Dates: start: 202204, end: 202206
  17. DEXAMETHASONE [Suspect]
     Active Substance: DEXAMETHASONE
     Dosage: UNK 5 TIMES AS A PART OF DRD REGIMEN (FROM AUG-2022 TO FEB-2023)
     Route: 065
     Dates: start: 202208, end: 202302
  18. DEXAMETHASONE [Suspect]
     Active Substance: DEXAMETHASONE
     Dosage: UNK, 3 TIMES AS A PART OF VAD+ IXAZOMIB REGIMEN (FROM JUN-2023 TO AUG-2023)
     Route: 065
     Dates: start: 202306, end: 202306
  19. DEXAMETHASONE [Suspect]
     Active Substance: DEXAMETHASONE
     Dosage: 1X KD
     Route: 065
     Dates: start: 202303, end: 202303
  20. DEXAMETHASONE [Suspect]
     Active Substance: DEXAMETHASONE
     Dosage: 3 TIMES, AS A PART OF KD+MP REGIMEN
     Route: 065
     Dates: start: 202304, end: 202306
  21. DEXAMETHASONE [Suspect]
     Active Substance: DEXAMETHASONE
     Dosage: 3 TIMES AS A PART OF VAD+ IXAZOMIB REGIMEN
     Route: 065
     Dates: start: 202306, end: 202308
  22. DOXORUBICIN [Suspect]
     Active Substance: DOXORUBICIN
     Indication: Plasma cell myeloma
     Dosage: UNK, 1 TIME AS A PART OF KD+PACE REGIMEN (START DATE: MAR-2023)
     Route: 065
     Dates: start: 202303, end: 202303
  23. DOXORUBICIN [Suspect]
     Active Substance: DOXORUBICIN
     Indication: Light chain disease
     Dosage: UNK, 3 TIMES AS A PART OF VAD+ IXAZOMIB REGIMEN (FROM JUN-2023 TO AUG-2023)
     Route: 065
     Dates: start: 202306, end: 202308
  24. ETOPOSIDE [Suspect]
     Active Substance: ETOPOSIDE
     Indication: Light chain disease
     Dosage: UNK, 1 TIME AS A PART OF KD+PACE REGIMEN (START DATE: MAR-2023)
     Route: 065
     Dates: start: 202303, end: 202303
  25. ETOPOSIDE [Suspect]
     Active Substance: ETOPOSIDE
     Indication: Plasma cell myeloma
  26. IXAZOMIB [Suspect]
     Active Substance: IXAZOMIB
     Indication: Plasma cell myeloma
     Dosage: UNK, 3 TIMES AS A PART OF VAD+ IXAZOMIB REGIMEN (FROM JUN-2023 TO AUG-2023)
     Route: 065
     Dates: start: 202306, end: 202308
  27. IXAZOMIB [Suspect]
     Active Substance: IXAZOMIB
     Indication: Light chain disease
  28. LENALIDOMIDE [Suspect]
     Active Substance: LENALIDOMIDE
     Indication: Plasma cell myeloma
     Dosage: UNK, 5 TIMES AS A PART OF DRD REGIMEN (FROM AUG-2022 TO FEB-2023)
     Route: 065
     Dates: start: 202208, end: 202302
  29. LENALIDOMIDE [Suspect]
     Active Substance: LENALIDOMIDE
     Indication: Light chain disease
  30. PREDNISONE [Suspect]
     Active Substance: PREDNISONE
     Indication: Light chain disease
     Dosage: UNK, 3 TIMES, AS A PART OF KD+MP REGIMEN (FROM APR-2023 TO JUN-2023)
     Route: 065
     Dates: start: 202304, end: 202306
  31. PREDNISONE [Suspect]
     Active Substance: PREDNISONE
     Indication: Plasma cell myeloma
  32. VELCADE [Suspect]
     Active Substance: BORTEZOMIB
     Indication: Light chain disease
     Dosage: UNK (5 TIMES AS A PART OF VCD REGIMEN (FROM MAR-2022 TO MAY-2022))
     Route: 065
     Dates: start: 202203, end: 202205
  33. VELCADE [Suspect]
     Active Substance: BORTEZOMIB
     Indication: Plasma cell myeloma
  34. VINCRISTINE [Suspect]
     Active Substance: VINCRISTINE
     Indication: Plasma cell myeloma
     Dosage: UNK, 3 TIMES AS A PART OF VAD+ IXAZOMIB REGIMEN (FROM JUN-2023 TO AUG-2023)
     Route: 065
     Dates: start: 202306, end: 202308
  35. VINCRISTINE [Suspect]
     Active Substance: VINCRISTINE
     Indication: Light chain disease

REACTIONS (5)
  - Light chain disease [Unknown]
  - Febrile neutropenia [Unknown]
  - Neutropenia [Unknown]
  - Plasma cell myeloma [Unknown]
  - Therapy partial responder [Unknown]

NARRATIVE: CASE EVENT DATE: 20230101
